FAERS Safety Report 24432720 (Version 1)
Quarter: 2024Q4

REPORT INFORMATION
  Report Type: Spontaneous
  Country: IT (occurrence: IT)
  Receive Date: 20241014
  Receipt Date: 20241014
  Transmission Date: 20250115
  Serious: Yes (Other)
  Sender: MYLAN
  Company Number: IT-MYLANLABS-2024M1091530

PATIENT
  Age: 8 Decade
  Sex: Female

DRUGS (5)
  1. PAROXETINE [Suspect]
     Active Substance: PAROXETINE
     Indication: Depression
     Dosage: 40 MILLIGRAM, RECEIVED AS FIRST LINE TREATMENT
     Route: 065
     Dates: start: 202109, end: 202205
  2. SERTRALINE [Suspect]
     Active Substance: SERTRALINE HYDROCHLORIDE
     Indication: Depression
     Dosage: 50 MILLIGRAM, RECEIVED AS FIRST LINE TREATMENT
     Route: 065
     Dates: start: 202205, end: 202212
  3. QUETIAPINE [Suspect]
     Active Substance: QUETIAPINE
     Indication: Depression
     Dosage: 150 MILLIGRAM, RECEIVED AS SECOND LINE TREATMENT
     Route: 065
     Dates: start: 202206, end: 202212
  4. FLUOXETINE [Suspect]
     Active Substance: FLUOXETINE HYDROCHLORIDE
     Indication: Depression
     Dosage: 20 MILLIGRAM, RECEIVED AS THIRD LINE TREATMENT
     Route: 065
     Dates: start: 202212
  5. OLANZAPINE [Suspect]
     Active Substance: OLANZAPINE
     Indication: Depression
     Dosage: 10 MILLIGRAM, RECEIVED AS THIRD LINE TREATMENT
     Route: 065
     Dates: start: 202212, end: 202305

REACTIONS (1)
  - Drug ineffective [Unknown]
